FAERS Safety Report 26005048 (Version 2)
Quarter: 2025Q4

REPORT INFORMATION
  Report Type: Report from Study
  Country: US (occurrence: US)
  Receive Date: 20251106
  Receipt Date: 20251214
  Transmission Date: 20260118
  Serious: Yes (Hospitalization, Other)
  Sender: JOHNSON AND JOHNSON
  Company Number: US-JNJFOC-20250431902

PATIENT
  Age: 78 Year
  Sex: Male

DRUGS (1)
  1. ERLEADA [Suspect]
     Active Substance: APALUTAMIDE
     Indication: Prostate cancer
     Route: 048

REACTIONS (13)
  - Vascular device infection [Recovering/Resolving]
  - Sepsis [Unknown]
  - Asthenia [Not Recovered/Not Resolved]
  - Dysphagia [Recovered/Resolved with Sequelae]
  - Hyperkalaemia [Recovered/Resolved with Sequelae]
  - Fall [Unknown]
  - Haemoglobin decreased [Not Recovered/Not Resolved]
  - Weight decreased [Not Recovered/Not Resolved]
  - Brain fog [Not Recovered/Not Resolved]
  - Amnesia [Not Recovered/Not Resolved]
  - Product use complaint [Recovered/Resolved with Sequelae]
  - Product size issue [Recovered/Resolved with Sequelae]
  - Dyspnoea exertional [Unknown]

NARRATIVE: CASE EVENT DATE: 20251201
